FAERS Safety Report 6889902-4 (Version None)
Quarter: 2010Q3

REPORT INFORMATION
  Report Type: 
  Country: None (occurrence: None)
  Receive Date: 20100730
  Receipt Date: 20080611
  Transmission Date: 20110219
  Serious: No
  Sender: FDA-Public Use
  Company Number: US-PFIZER INC-2008049909

PATIENT
  Sex: Male
  Weight: 113.4 kg

DRUGS (7)
  1. LIPITOR [Suspect]
     Indication: BLOOD CHOLESTEROL INCREASED
     Dates: start: 20080603
  2. METFORMIN HCL [Concomitant]
  3. METOPROLOL TARTRATE [Concomitant]
  4. CLONAZEPAM [Concomitant]
  5. SEROQUEL [Concomitant]
  6. PLAVIX [Concomitant]
  7. ACETYLSALICYLIC ACID SRT [Concomitant]

REACTIONS (1)
  - FLATULENCE [None]
